FAERS Safety Report 20841170 (Version 1)
Quarter: 2022Q2

REPORT INFORMATION
  Report Type: Spontaneous
  Country: IT (occurrence: None)
  Receive Date: 20220517
  Receipt Date: 20220517
  Transmission Date: 20220721
  Serious: Yes (Other)
  Sender: FDA-Public Use
  Company Number: IT-Fresenius Kabi-FK202205502

PATIENT
  Age: 38 Year
  Sex: Female

DRUGS (21)
  1. PROPOFOL [Suspect]
     Active Substance: PROPOFOL
     Indication: Epilepsy
     Dosage: 2 TO 6.6 MG/KG/H
     Route: 065
  2. MIDAZOLAM [Suspect]
     Active Substance: MIDAZOLAM
     Indication: Epilepsy
     Dosage: 0.13?3 MG/KG/H
     Route: 065
  3. MIDAZOLAM [Suspect]
     Active Substance: MIDAZOLAM
     Dosage: 0.13 TO 3 MG/KG/H
     Route: 065
  4. THIOPENTAL SODIUM [Suspect]
     Active Substance: THIOPENTAL SODIUM
     Indication: Epilepsy
     Dosage: 1?5 MG/KG/H
     Route: 065
  5. THIOPENTAL SODIUM [Suspect]
     Active Substance: THIOPENTAL SODIUM
     Dosage: 1 TO 5 MG/KG/H
     Route: 065
  6. KETAMINE [Suspect]
     Active Substance: KETAMINE
     Indication: Epilepsy
     Dosage: 2 TO 4 MG/KG/H
     Route: 065
  7. SEVOFLURANE [Suspect]
     Active Substance: SEVOFLURANE
     Indication: Epilepsy
     Route: 065
  8. LACOSAMIDE [Concomitant]
     Active Substance: LACOSAMIDE
     Indication: Seizure
     Route: 065
  9. LACOSAMIDE [Concomitant]
     Active Substance: LACOSAMIDE
     Dosage: 400 TO 600 MG/DAY
     Route: 065
  10. LEVETIRACETAM [Concomitant]
     Active Substance: LEVETIRACETAM
     Indication: Seizure
     Route: 065
  11. LEVETIRACETAM [Concomitant]
     Active Substance: LEVETIRACETAM
     Dosage: 2000 TO 3000 MG/DAY
     Route: 042
  12. PHENYTOIN [Concomitant]
     Active Substance: PHENYTOIN
     Indication: Seizure
     Route: 065
  13. PHENYTOIN [Concomitant]
     Active Substance: PHENYTOIN
     Dosage: 250 TO 750 MG/DAY
     Route: 065
  14. PHENOBARBITAL [Concomitant]
     Active Substance: PHENOBARBITAL
     Indication: Seizure
     Route: 065
  15. PHENOBARBITAL [Concomitant]
     Active Substance: PHENOBARBITAL
     Dosage: 200 TO 300 MG/DAY
     Route: 065
  16. VALPROIC ACID [Concomitant]
     Active Substance: VALPROIC ACID
     Indication: Seizure
     Dosage: 500 TO 2000 MG/DAY
     Route: 065
  17. TOPIRAMATE [Concomitant]
     Active Substance: TOPIRAMATE
     Indication: Seizure
     Dosage: 300 TO 600 MG/DAY?ROUTE OF ADMIN. REPORTED AS ENTERAL
     Route: 050
  18. PERAMPANEL [Concomitant]
     Active Substance: PERAMPANEL
     Indication: Seizure
     Dosage: 8 TO 16 MG/DAY
     Route: 065
  19. IMMUNE GLOBULIN NOS [Concomitant]
     Active Substance: IMMUNE GLOBULIN NOS
     Dosage: 0.4 G/KG TWO TIMES OVER 5 DAYS
     Route: 042
  20. METHYLPREDNISOLONE [Concomitant]
     Active Substance: METHYLPREDNISOLONE
     Dosage: 1 G/DAY, THREE TIMES OVER 5 DAYS
     Route: 042
  21. BREXANOLONE [Concomitant]
     Active Substance: BREXANOLONE
     Indication: Status epilepticus
     Route: 042

REACTIONS (6)
  - Multiple organ dysfunction syndrome [Unknown]
  - Acute lung injury [Unknown]
  - Bradycardia [Unknown]
  - Hypotension [Unknown]
  - Product use in unapproved indication [Unknown]
  - Off label use [Unknown]
